FAERS Safety Report 4657916-0 (Version None)
Quarter: 2005Q2

REPORT INFORMATION
  Report Type: 
  Country: None (occurrence: None)
  Receive Date: 20050510
  Receipt Date: 20030423
  Transmission Date: 20051028
  Serious: Yes (Death, Hospitalization)
  Sender: FDA-Public Use
  Company Number: FR-SANOFI-SYNTHELABO-F01200300399

PATIENT
  Sex: Male
  Weight: 57 kg

DRUGS (7)
  1. OXALIPLATIN [Suspect]
     Dosage: 100 MG/M2 ON D2; Q2W
     Route: 042
     Dates: start: 20030117, end: 20030117
  2. GEMCITABINE [Suspect]
     Dosage: 1000 MG/M2 ON D1; Q2W
     Route: 042
     Dates: start: 20030116, end: 20030116
  3. NITRODERM [Concomitant]
     Dosage: UNK
     Route: 062
     Dates: start: 20030101
  4. CORDARONE [Concomitant]
     Dosage: 1 UNIT
     Route: 048
     Dates: start: 20021201
  5. TEMESTA [Concomitant]
     Dosage: 1 UNIT
     Route: 048
     Dates: start: 20021201
  6. MOPRAL [Concomitant]
     Dosage: 20 MG
     Route: 048
     Dates: start: 20021201
  7. DIANTALVIC [Concomitant]
     Dosage: 100 MG
     Route: 048
     Dates: start: 20030128

REACTIONS (5)
  - ANAEMIA [None]
  - DISEASE PROGRESSION [None]
  - GENERAL PHYSICAL HEALTH DETERIORATION [None]
  - HEPATIC NEOPLASM [None]
  - HYPONATRAEMIA [None]
